FAERS Safety Report 8201716-1 (Version None)
Quarter: 2012Q1

REPORT INFORMATION
  Report Type: 
  Country: None (occurrence: None)
  Receive Date: 20120308
  Receipt Date: 20120224
  Transmission Date: 20120608
  Serious: Yes (Hospitalization)
  Sender: FDA-Public Use
  Company Number: 2012DE0087

PATIENT
  Age: 59 Year
  Sex: Female

DRUGS (7)
  1. ANAKINRA (ANAKINRA) [Suspect]
     Indication: RHEUMATOID ARTHRITIS
     Dosage: 28,5714 MG (100 MG, 2 IN 1 WK)
     Dates: start: 20051001
  2. AESCIN (SAPONINS) [Concomitant]
  3. CHLOROQUIN (CHLOROQUINE) [Concomitant]
  4. PANTOZOL (PANTOZOLE) [Concomitant]
  5. VITAMINE D3/CALCIUM (VITAMINE D3/CALCIUM) [Concomitant]
  6. THYROTIN (LEVOTHYROXIN) [Concomitant]
  7. DICLOFENAC SODIUM [Concomitant]

REACTIONS (6)
  - ROTATOR CUFF SYNDROME [None]
  - OSTEOARTHRITIS [None]
  - PERIARTHRITIS [None]
  - SYNOVITIS [None]
  - LOOSE BODY IN JOINT [None]
  - TENDON RUPTURE [None]
